FAERS Safety Report 13851995 (Version 1)
Quarter: 2017Q3

REPORT INFORMATION
  Report Type: Report from Study
  Country: None (occurrence: BR)
  Receive Date: 20170810
  Receipt Date: 20170810
  Transmission Date: 20171127
  Serious: Yes (Other)
  Sender: FDA-Public Use
  Company Number: BR-ABBVIE-17K-020-2062316-00

PATIENT
  Age: 69 Year
  Sex: Female
  Weight: 63 kg

DRUGS (7)
  1. HUMIRA [Suspect]
     Active Substance: ADALIMUMAB
     Route: 058
  2. HUMIRA [Suspect]
     Active Substance: ADALIMUMAB
     Route: 058
  3. HUMIRA [Suspect]
     Active Substance: ADALIMUMAB
     Route: 058
  4. ASPIRINA PREVENT [Concomitant]
     Active Substance: ASPIRIN
     Indication: ANTICOAGULANT THERAPY
     Route: 048
     Dates: start: 2015
  5. HUMIRA [Suspect]
     Active Substance: ADALIMUMAB
     Route: 058
  6. HUMIRA [Suspect]
     Active Substance: ADALIMUMAB
     Indication: RHEUMATOID ARTHRITIS
     Route: 058
     Dates: start: 200908
  7. XEFO [Suspect]
     Active Substance: LORNOXICAM
     Indication: PAIN
     Route: 048
     Dates: start: 201608

REACTIONS (14)
  - Cardiac disorder [Unknown]
  - Pain [Recovering/Resolving]
  - Defaecation urgency [Recovered/Resolved]
  - Hypotension [Recovered/Resolved]
  - Retching [Recovered/Resolved]
  - Blood cholesterol abnormal [Recovering/Resolving]
  - Myocardial infarction [Recovered/Resolved]
  - Defaecation urgency [Unknown]
  - Hypotension [Unknown]
  - Malaise [Recovered/Resolved]
  - Malaise [Unknown]
  - Pain [Recovered/Resolved]
  - Retching [Unknown]
  - Weight decreased [Unknown]

NARRATIVE: CASE EVENT DATE: 2013
